FAERS Safety Report 13899989 (Version 1)
Quarter: 2017Q3

REPORT INFORMATION
  Report Type: Spontaneous
  Country: US (occurrence: None)
  Receive Date: 20170818
  Receipt Date: 20170818
  Transmission Date: 20171127
  Serious: Yes (Hospitalization)
  Sender: FDA-Public Use
  Company Number: None

PATIENT
  Age: 71 Year
  Sex: Female
  Weight: 49.99 kg

DRUGS (8)
  1. OPIUM OF TINCTURE [Concomitant]
  2. PANCREATIC ENZYMES [Concomitant]
     Active Substance: UNSPECIFIED INGREDIENT
  3. OCTREOTIDE. [Concomitant]
     Active Substance: OCTREOTIDE
  4. LOMOTIL [Concomitant]
     Active Substance: ATROPINE SULFATE\DIPHENOXYLATE HYDROCHLORIDE
  5. DALTEPARIN 10,000 U/ML [Suspect]
     Active Substance: DALTEPARIN
     Indication: BRACHIOCEPHALIC VEIN THROMBOSIS
     Route: 058
     Dates: start: 20170614
  6. IMODIUM [Concomitant]
     Active Substance: LOPERAMIDE HYDROCHLORIDE
  7. DALTEPARIN 10,000 U/ML [Suspect]
     Active Substance: DALTEPARIN
     Indication: VENA CAVA THROMBOSIS
     Route: 058
     Dates: start: 20170712
  8. DALTEPARIN 10,000 U/ML [Suspect]
     Active Substance: DALTEPARIN
     Indication: VENA CAVA THROMBOSIS
     Route: 058
     Dates: start: 20170614

REACTIONS (6)
  - Diarrhoea [None]
  - Dehydration [None]
  - Asthenia [None]
  - Electrolyte imbalance [None]
  - Gait disturbance [None]
  - Flatulence [None]

NARRATIVE: CASE EVENT DATE: 20170814
